FAERS Safety Report 4356585-7 (Version None)
Quarter: 2004Q2

REPORT INFORMATION
  Report Type: 
  Country: None (occurrence: None)
  Receive Date: 20040507
  Receipt Date: 20040430
  Transmission Date: 20050107
  Serious: Yes (Hospitalization)
  Sender: FDA-Public Use
  Company Number: STA-AE-04-MTX-179

PATIENT
  Sex: Male

DRUGS (2)
  1. METHOTREXATE [Suspect]
     Dosage: 15 MG
  2. ENBREL [Suspect]
     Dates: end: 20030901

REACTIONS (2)
  - DEPRESSION [None]
  - SUICIDE ATTEMPT [None]
